FAERS Safety Report 16706623 (Version 1)
Quarter: 2019Q3

REPORT INFORMATION
  Report Type: Spontaneous
  Country: US (occurrence: US)
  Receive Date: 20190815
  Receipt Date: 20190815
  Transmission Date: 20191004
  Serious: No
  Sender: FDA-Public Use
  Company Number: US-PACIRA-201600107

PATIENT

DRUGS (2)
  1. EXPAREL [Suspect]
     Active Substance: BUPIVACAINE
     Indication: POSTOPERATIVE ANALGESIA
     Dosage: 20 CC EXPAREL
     Route: 065
     Dates: start: 20160920, end: 20160920
  2. LIDOCAINE. [Suspect]
     Active Substance: LIDOCAINE
     Indication: FOOT OPERATION
     Dosage: 20 CC LIDOCAINE
     Route: 065
     Dates: start: 20160920, end: 20160920

REACTIONS (1)
  - Labelled drug-drug interaction medication error [Unknown]

NARRATIVE: CASE EVENT DATE: 20160920
